FAERS Safety Report 25918203 (Version 1)
Quarter: 2025Q4

REPORT INFORMATION
  Report Type: Spontaneous
  Country: EU (occurrence: EU)
  Receive Date: 20251014
  Receipt Date: 20251014
  Transmission Date: 20260117
  Serious: Yes (Other)
  Sender: ABBVIE
  Company Number: EU-SANDOZ-SDZ2025SK072440

PATIENT
  Age: 22 Year
  Sex: Female

DRUGS (5)
  1. ADALIMUMAB [Suspect]
     Active Substance: ADALIMUMAB
     Indication: Crohn^s disease
     Dosage: 80 MG
     Route: 065
     Dates: start: 20231214
  2. ADALIMUMAB [Suspect]
     Active Substance: ADALIMUMAB
     Dosage: 40 MG
     Route: 065
     Dates: start: 20231214
  3. ADALIMUMAB [Suspect]
     Active Substance: ADALIMUMAB
     Dosage: 160 MG
     Route: 065
     Dates: start: 20231214
  4. INFLIXIMAB [Suspect]
     Active Substance: INFLIXIMAB
     Indication: Crohn^s disease
     Dosage: 300 MG
     Route: 065
     Dates: start: 20240509
  5. INFLIXIMAB [Suspect]
     Active Substance: INFLIXIMAB
     Indication: Crohn^s disease
     Route: 065
     Dates: start: 202407

REACTIONS (14)
  - Chills [Unknown]
  - Proctalgia [Unknown]
  - Colitis ulcerative [Unknown]
  - Colitis [Unknown]
  - Proctitis [Unknown]
  - C-reactive protein [Unknown]
  - Therapeutic product effect delayed [Unknown]
  - Large intestine erosion [Unknown]
  - Mucosal inflammation [Unknown]
  - Large intestinal ulcer [Unknown]
  - Pseudopolyposis [Unknown]
  - Large intestinal ulcer [Unknown]
  - Gastrointestinal scarring [Unknown]
  - Mucosal ulceration [Unknown]
